FAERS Safety Report 5801005-6 (Version None)
Quarter: 2008Q3

REPORT INFORMATION
  Report Type: 
  Country: None (occurrence: None)
  Receive Date: 20080702
  Receipt Date: 20080617
  Transmission Date: 20090109
  Serious: Yes (Death, Hospitalization)
  Sender: FDA-Public Use
  Company Number: 2008AL007289

PATIENT
  Age: 75 Year
  Sex: Male

DRUGS (1)
  1. DIGOXIN [Suspect]
     Indication: ARRHYTHMIA
     Dosage: 0.25MG, QD, PO
     Route: 048

REACTIONS (6)
  - ANOREXIA [None]
  - CARDIAC DISORDER [None]
  - DIZZINESS [None]
  - GALLBLADDER DISORDER [None]
  - NAUSEA [None]
  - RENAL DISORDER [None]
